FAERS Safety Report 9201784 (Version 2)
Quarter: 2013Q4

REPORT INFORMATION
  Report Type: Report from Study
  Country: CA (occurrence: CA)
  Receive Date: 20130401
  Receipt Date: 20131121
  Transmission Date: 20140711
  Serious: Yes (Death, Hospitalization, Other)
  Sender: FDA-Public Use
  Company Number: CA-ROCHE-1137526

PATIENT
  Age: 55 Year
  Sex: Female
  Weight: 57 kg

DRUGS (12)
  1. AVASTIN [Suspect]
     Indication: OVARIAN CANCER
     Dosage: 15 MG/KG
     Route: 042
     Dates: start: 20120503, end: 20130318
  2. AVASTIN [Suspect]
     Route: 042
     Dates: start: 20120302, end: 20121002
  3. TYLENOL [Concomitant]
     Indication: PREMEDICATION
     Route: 048
     Dates: start: 20120503, end: 20130308
  4. BENADRYL (CANADA) [Concomitant]
     Indication: PREMEDICATION
     Route: 048
     Dates: start: 20120503, end: 20130308
  5. TAXOL [Concomitant]
     Indication: CHEMOTHERAPY
     Route: 065
     Dates: start: 201211
  6. CAELYX [Concomitant]
     Indication: OVARIAN CANCER
     Route: 042
     Dates: start: 20130215, end: 20130318
  7. CIPROFLOXACIN [Concomitant]
     Indication: PERITONITIS
     Route: 042
     Dates: start: 20130325, end: 20130326
  8. HYDROMORPHONE [Concomitant]
     Indication: PAIN
     Route: 042
     Dates: start: 20130325, end: 20130327
  9. METRONIDAZOLE [Concomitant]
     Indication: PERITONITIS
     Route: 042
     Dates: start: 20130325, end: 20130326
  10. GEMCITABINE HCL [Concomitant]
     Route: 065
     Dates: start: 20120126, end: 20120329
  11. CYCLOPHOSPHAMIDE [Concomitant]
     Route: 048
     Dates: start: 20120302, end: 20121002
  12. PEGYLATED LIPOSOMAL DOXORUBICIN [Concomitant]

REACTIONS (6)
  - Intestinal perforation [Fatal]
  - Pneumoperitoneum [Unknown]
  - Diarrhoea [Recovered/Resolved]
  - Malaise [Not Recovered/Not Resolved]
  - Fatigue [Unknown]
  - Disease progression [Unknown]
